FAERS Safety Report 10066444 (Version 2)
Quarter: 2014Q2

REPORT INFORMATION
  Report Type: Report from Study
  Country: US (occurrence: US)
  Receive Date: 20140408
  Receipt Date: 20140520
  Transmission Date: 20141212
  Serious: Yes (Death, Other)
  Sender: FDA-Public Use
  Company Number: US-ASTELLAS-2014US003609

PATIENT
  Age: 63 Year
  Sex: Female

DRUGS (2)
  1. ERLOTINIB [Suspect]
     Indication: PANCREATIC CARCINOMA
     Route: 065
  2. ERLOTINIB [Suspect]
     Indication: HEPATIC CANCER

REACTIONS (3)
  - Malignant neoplasm progression [Fatal]
  - Intestinal perforation [Fatal]
  - Stomatitis [Unknown]
